FAERS Safety Report 15842355 (Version 1)
Quarter: 2019Q1

REPORT INFORMATION
  Report Type: Spontaneous
  Country: US (occurrence: US)
  Receive Date: 20190117
  Receipt Date: 20190117
  Transmission Date: 20190417
  Serious: Yes (Hospitalization)
  Sender: FDA-Public Use
  Company Number: None

PATIENT
  Age: 8 Year
  Sex: Male
  Weight: 26.3 kg

DRUGS (5)
  1. PEG-L-ASPARAGINASE [Suspect]
     Active Substance: PEGASPARGASE
     Dates: end: 20180801
  2. VINCRISTINE SULFATE. [Suspect]
     Active Substance: VINCRISTINE SULFATE
     Dates: end: 20180803
  3. METHOTREXATE. [Suspect]
     Active Substance: METHOTREXATE
     Dates: end: 20180730
  4. MITOXANTRONE HYDROCHLORIDE. [Suspect]
     Active Substance: MITOXANTRONE HYDROCHLORIDE
     Dates: end: 20180717
  5. DEXAMETHASONE. [Suspect]
     Active Substance: DEXAMETHASONE
     Dates: end: 20180804

REACTIONS (4)
  - Pain [None]
  - Neutropenic colitis [None]
  - Colitis [None]
  - Abdominal distension [None]

NARRATIVE: CASE EVENT DATE: 20180804
